FAERS Safety Report 13810368 (Version 1)
Quarter: 2017Q3

REPORT INFORMATION
  Report Type: Report from Study
  Country: CN (occurrence: CN)
  Receive Date: 20170728
  Receipt Date: 20170728
  Transmission Date: 20171127
  Serious: Yes (Other)
  Sender: FDA-Public Use
  Company Number: CN-ROCHE-1970747

PATIENT

DRUGS (8)
  1. TENECTEPLASE [Suspect]
     Active Substance: TENECTEPLASE
     Indication: ACUTE MYOCARDIAL INFARCTION
     Dosage: INJECTED FOR 10 SECONDS
     Route: 042
  2. ALTEPLASE. [Suspect]
     Active Substance: ALTEPLASE
     Indication: ACUTE MYOCARDIAL INFARCTION
     Route: 040
  3. ALTEPLASE. [Suspect]
     Active Substance: ALTEPLASE
     Dosage: FOR 60 MINUTES WITH THE TOTAL DOSE NOT EXCEEDING 35 MG
     Route: 042
  4. HEPARIN [Concomitant]
     Active Substance: HEPARIN SODIUM
     Dosage: 12 U/KG/HR (MAXIMUM 1000 U/HOUR) FOR 48 HOUR
     Route: 042
  5. ASPIRIN. [Concomitant]
     Active Substance: ASPIRIN
     Indication: ACUTE MYOCARDIAL INFARCTION
     Dosage: 150-250 MG IMMEDIATELY AFTER ENROLLMENT
     Route: 048
  6. ASPIRIN. [Concomitant]
     Active Substance: ASPIRIN
     Dosage: 75-325 MG/DAY FOR AT LEAST 30 DAYS
     Route: 048
  7. ALTEPLASE. [Suspect]
     Active Substance: ALTEPLASE
     Dosage: FOR 30 MINUTES WITH THE TOTAL DOSE NOT EXCEEDING 50 MG
     Route: 042
  8. HEPARIN [Concomitant]
     Active Substance: HEPARIN SODIUM
     Dosage: 60 U/KG (MAXIMUM 4000 U)
     Route: 040

REACTIONS (2)
  - Cerebral haemorrhage [Unknown]
  - Haemorrhage [Unknown]
